FAERS Safety Report 4706805-1 (Version None)
Quarter: 2005Q3

REPORT INFORMATION
  Report Type: 
  Country: None (occurrence: None)
  Receive Date: 20050705
  Receipt Date: 20050622
  Transmission Date: 20060218
  Serious: Yes (Other)
  Sender: FDA-Public Use
  Company Number: 2005083788

PATIENT
  Sex: Male
  Weight: 86.1834 kg

DRUGS (3)
  1. VIAGRA [Suspect]
     Indication: ERECTILE DYSFUNCTION
     Dosage: 50 MG (50 MG, 1-2 WEEKLY) ORAL
     Route: 048
     Dates: start: 20020701
  2. ALLOPURINOL [Concomitant]
  3. ALL OTHER THERAPEUTIC PRODUCTS [Concomitant]

REACTIONS (5)
  - DEPRESSION [None]
  - EYE PAIN [None]
  - TRANSIENT ISCHAEMIC ATTACK [None]
  - VISION BLURRED [None]
  - VISUAL ACUITY REDUCED [None]
